FAERS Safety Report 6159782-3 (Version None)
Quarter: 2009Q2

REPORT INFORMATION
  Report Type: 
  Country: None (occurrence: None)
  Receive Date: 20090420
  Receipt Date: 20090409
  Transmission Date: 20091009
  Serious: Yes (Hospitalization, Disabling, Other)
  Sender: FDA-Public Use
  Company Number: US-ELI_LILLY_AND_COMPANY-US200903006783

PATIENT
  Sex: Female

DRUGS (4)
  1. FORTEO [Suspect]
     Indication: OSTEOPOROSIS
     Dosage: 20 UG, DAILY (1/D)
     Dates: start: 20051201, end: 20060101
  2. FORTEO [Suspect]
     Dosage: 20 UG, DAILY (1/D)
     Dates: start: 20090326
  3. PREMARIN [Concomitant]
  4. LIPITOR [Concomitant]

REACTIONS (4)
  - FALL [None]
  - HYPOAESTHESIA [None]
  - JOINT DISLOCATION [None]
  - UPPER LIMB FRACTURE [None]
